FAERS Safety Report 6679246-8 (Version None)
Quarter: 2010Q2

REPORT INFORMATION
  Report Type: 
  Country: None (occurrence: None)
  Receive Date: 20100413
  Receipt Date: 20100405
  Transmission Date: 20101027
  Serious: Yes (Other)
  Sender: FDA-Public Use
  Company Number: JP-BAYER-201010701BYL

PATIENT
  Age: 63 Year
  Sex: Female
  Weight: 67 kg

DRUGS (12)
  1. NEXAVAR [Suspect]
     Indication: RENAL CELL CARCINOMA
     Dosage: TOTAL DAILY DOSE: 800 MG  UNIT DOSE: 200 MG
     Route: 048
     Dates: start: 20091007, end: 20091018
  2. NEXAVAR [Suspect]
     Dosage: UNIT DOSE: 200 MG
     Route: 048
     Dates: start: 20091109, end: 20091109
  3. NEXAVAR [Suspect]
     Dosage: UNIT DOSE: 200 MG
     Route: 048
     Dates: start: 20091118, end: 20091208
  4. CELESTAMINE TAB [Suspect]
     Indication: TOXIC SKIN ERUPTION
     Route: 048
     Dates: start: 20091103, end: 20091107
  5. CELESTAMINE TAB [Suspect]
     Route: 048
     Dates: start: 20091027, end: 20091102
  6. CELESTAMINE TAB [Suspect]
     Route: 048
     Dates: start: 20091022, end: 20091024
  7. CELESTAMINE TAB [Suspect]
     Route: 048
     Dates: start: 20091117, end: 20091208
  8. INTERFERON ALFA [Concomitant]
     Indication: HEPATIC NEOPLASM MALIGNANT
     Route: 042
     Dates: start: 20090512, end: 20090915
  9. CEFDINIR [Concomitant]
     Indication: PYREXIA
     Dosage: UNIT DOSE: 100 MG
     Route: 048
     Dates: start: 20091013, end: 20091018
  10. DIOVAN [Concomitant]
     Indication: HYPERTENSION
     Route: 048
  11. OMEPRAL [Concomitant]
     Indication: GASTRIC ULCER
     Route: 048
  12. SUMIFERON [Concomitant]
     Indication: HEPATIC NEOPLASM MALIGNANT
     Dosage: TOTAL DAILY DOSE: 6 MIU
     Route: 058
     Dates: start: 20090512, end: 20090915

REACTIONS (3)
  - HEPATIC FUNCTION ABNORMAL [None]
  - PYREXIA [None]
  - TOXIC SKIN ERUPTION [None]
